FAERS Safety Report 21783196 (Version 2)
Quarter: 2023Q2

REPORT INFORMATION
  Report Type: Spontaneous
  Country: US (occurrence: US)
  Receive Date: 20221227
  Receipt Date: 20230406
  Transmission Date: 20230721
  Serious: No
  Sender: FDA-Public Use
  Company Number: US-SA-SAC20221223000014

PATIENT
  Age: 44 Year
  Sex: Male

DRUGS (2)
  1. CAPRELSA [Suspect]
     Active Substance: VANDETANIB
     Indication: Thyroid cancer
     Dosage: 100 MG, Q12H
     Route: 048
     Dates: start: 2022
  2. CAPRELSA [Suspect]
     Active Substance: VANDETANIB
     Dosage: 100 MG, QD
     Route: 048
     Dates: start: 20221115

REACTIONS (4)
  - Pain in extremity [Unknown]
  - Skin disorder [Unknown]
  - Paraesthesia [Recovering/Resolving]
  - Product dose omission in error [Unknown]
